FAERS Safety Report 6911927-0 (Version None)
Quarter: 2010Q3

REPORT INFORMATION
  Report Type: 
  Country: None (occurrence: None)
  Receive Date: 20100806
  Receipt Date: 20070913
  Transmission Date: 20110219
  Serious: Yes (Other)
  Sender: FDA-Public Use
  Company Number: US-PFIZER INC-2007077264

PATIENT
  Age: 75 Year
  Sex: Female

DRUGS (3)
  1. VFEND [Suspect]
     Indication: BRONCHOPULMONARY ASPERGILLOSIS
     Dates: start: 20070810
  2. DOPAMINE HCL [Concomitant]
  3. ANTIBIOTICS [Concomitant]
     Dates: end: 20070101

REACTIONS (4)
  - BODY TEMPERATURE DECREASED [None]
  - HYPOTENSION [None]
  - LEUKOCYTOSIS [None]
  - SEPSIS [None]
